FAERS Safety Report 7634739-1 (Version None)
Quarter: 2011Q3

REPORT INFORMATION
  Report Type: 
  Country: None (occurrence: None)
  Receive Date: 20110726
  Receipt Date: 20110719
  Transmission Date: 20111222
  Serious: Yes (Hospitalization)
  Sender: FDA-Public Use
  Company Number: US-BIOGENIDEC-2011BI020549

PATIENT
  Age: 75 Year
  Sex: Male

DRUGS (1)
  1. TYSABRI [Suspect]
     Indication: CROHN'S DISEASE
     Route: 042
     Dates: start: 20100929, end: 20110402

REACTIONS (4)
  - BLADDER DISORDER [None]
  - DECREASED IMMUNE RESPONSIVENESS [None]
  - SEPSIS [None]
  - RENAL DISORDER [None]
